FAERS Safety Report 7042717-9 (Version None)
Quarter: 2010Q4

REPORT INFORMATION
  Report Type: 
  Country: None (occurrence: None)
  Receive Date: 20101013
  Receipt Date: 20100721
  Transmission Date: 20110411
  Serious: No
  Sender: FDA-Public Use
  Company Number: US-ASTRAZENECA-2010SE26749

PATIENT
  Age: 78 Year
  Sex: Male
  Weight: 77.1 kg

DRUGS (18)
  1. SYMBICORT [Suspect]
     Indication: DYSPNOEA
     Dosage: 160 UG BID
     Route: 055
     Dates: start: 20090401
  2. SYMBICORT [Suspect]
     Dosage: 160 UG BID
     Route: 055
     Dates: start: 20100501
  3. COMBIVENT [Concomitant]
     Indication: DYSPNOEA
  4. ASPIRIN [Concomitant]
  5. PLAVIX [Concomitant]
  6. FUROSEMIDE [Concomitant]
  7. DIOVAN [Concomitant]
     Dosage: 100/12 MG DAILY
  8. LYRICA [Concomitant]
  9. CLONAZEPAM [Concomitant]
  10. COREG [Concomitant]
  11. LENOXIN [Concomitant]
  12. PRAVASTATIN [Concomitant]
  13. AMLODIPINE [Concomitant]
  14. ISOSORBIDE [Concomitant]
  15. PEPCID [Concomitant]
  16. FISHOILS [Concomitant]
  17. PROBIOTICS [Concomitant]
  18. MULTI-VITAMIN [Concomitant]

REACTIONS (2)
  - DRUG INEFFECTIVE [None]
  - DYSPNOEA [None]
